FAERS Safety Report 6859876-0 (Version None)
Quarter: 2010Q3

REPORT INFORMATION
  Report Type: 
  Country: None (occurrence: None)
  Receive Date: 20100719
  Receipt Date: 20100719
  Transmission Date: 20110219
  Serious: Yes (Other)
  Sender: FDA-Public Use
  Company Number: None

PATIENT
  Sex: Male
  Weight: 96.1626 kg

DRUGS (1)
  1. CIPROFLOXACIN [Suspect]
     Indication: SINUSITIS
     Dosage: 1 TWICE PER DAY 2 TIMES DAY ORAL
     Route: 048
     Dates: start: 20100622

REACTIONS (1)
  - TENDONITIS [None]
